FAERS Safety Report 7471126-3 (Version None)
Quarter: 2011Q2

REPORT INFORMATION
  Report Type: 
  Country: None (occurrence: None)
  Receive Date: 20110510
  Receipt Date: 20110504
  Transmission Date: 20111010
  Serious: Yes (Hospitalization, Other)
  Sender: FDA-Public Use
  Company Number: US-B.I. PHARMACEUTICALS,INC./RIDGEFIELD-2011-BP-09836BP

PATIENT
  Age: 74 Year
  Sex: Female
  Weight: 66.6 kg

DRUGS (11)
  1. SIMVASTATIN [Concomitant]
     Dosage: 20 MG
     Route: 048
  2. ASPIRIN [Concomitant]
     Dosage: 81 MG
     Route: 048
  3. SYNTHROID [Concomitant]
     Dosage: 88 MCG
     Route: 048
  4. LASIX [Concomitant]
     Dosage: 40 MG
     Route: 048
  5. DIGOXIN [Concomitant]
     Dosage: 0.125 MG
     Route: 048
  6. PRADAXA [Suspect]
     Indication: ATRIAL FIBRILLATION
     Dosage: 300 MG
     Route: 048
     Dates: end: 20110327
  7. MAAGOX [Concomitant]
     Dosage: 400 MG
     Route: 048
  8. CALCIUM [Concomitant]
     Dosage: 2400 MG
     Route: 048
  9. POTASSIUM CHLORIDE [Concomitant]
     Dosage: 40 MEQ
     Route: 048
  10. QUINAPRIL [Concomitant]
     Dosage: 20 MG
     Route: 048
  11. COREG [Concomitant]
     Dosage: 25 MG
     Route: 048

REACTIONS (3)
  - ABDOMINAL PAIN [None]
  - CHOLECYSTITIS ACUTE [None]
  - RENAL FAILURE ACUTE [None]
